FAERS Safety Report 24624230 (Version 1)
Quarter: 2024Q4

REPORT INFORMATION
  Report Type: Spontaneous
  Country: US (occurrence: None)
  Receive Date: 20241114
  Receipt Date: 20241114
  Transmission Date: 20250115
  Serious: Yes (unspecified)
  Sender: Public
  Company Number: None

PATIENT
  Age: 41 Year
  Sex: Female
  Weight: 47.25 kg

DRUGS (2)
  1. MONOFERRIC [Suspect]
     Active Substance: FERRIC DERISOMALTOSE
     Indication: Iron deficiency anaemia
     Dosage: OTHER FREQUENCY : ONCE;?
     Route: 041
     Dates: start: 20241114, end: 20241114
  2. SODIUM CHLORIDE [Concomitant]
     Active Substance: SODIUM CHLORIDE

REACTIONS (5)
  - Infusion related reaction [None]
  - Fatigue [None]
  - Nausea [None]
  - Head discomfort [None]
  - Feeling abnormal [None]

NARRATIVE: CASE EVENT DATE: 20241114
